FAERS Safety Report 17499092 (Version 2)
Quarter: 2020Q2

REPORT INFORMATION
  Report Type: Other
  Country: CA (occurrence: CA)
  Receive Date: 20200305
  Receipt Date: 20200421
  Transmission Date: 20200713
  Serious: Yes (Hospitalization, Other)
  Sender: FDA-Public Use
  Company Number: CA-APOTEX-2020AP008303

PATIENT
  Age: 50 Year
  Sex: Male

DRUGS (9)
  1. BUSULFEX [Suspect]
     Active Substance: BUSULFAN
     Indication: STEM CELL TRANSPLANT
     Dosage: 213 MG, QD
     Route: 042
  2. BUSULFEX [Suspect]
     Active Substance: BUSULFAN
     Indication: AUTOLOGOUS HAEMATOPOIETIC STEM CELL TRANSPLANT
     Dosage: UNK UNK, UNKNOWN
     Route: 065
  3. LENALIDOMIDE [Suspect]
     Active Substance: LENALIDOMIDE
     Indication: STEM CELL TRANSPLANT
     Dosage: 10 MG, QD
     Route: 048
  4. REVLIMID [Suspect]
     Active Substance: LENALIDOMIDE
     Indication: STEM CELL TRANSPLANT
     Dosage: 10 MG, QD
     Route: 048
  5. BUSULFAN. [Suspect]
     Active Substance: BUSULFAN
     Dosage: 213 MG, QD
     Route: 042
  6. REVLIMID [Suspect]
     Active Substance: LENALIDOMIDE
     Indication: AUTOLOGOUS HAEMATOPOIETIC STEM CELL TRANSPLANT
     Dosage: UNK UNK, UNKNOWN
     Route: 065
  7. MELPHALAN. [Suspect]
     Active Substance: MELPHALAN
     Indication: STEM CELL TRANSPLANT
     Dosage: 246 MG, QD
     Route: 041
  8. MELPHALAN. [Suspect]
     Active Substance: MELPHALAN
     Indication: AUTOLOGOUS HAEMATOPOIETIC STEM CELL TRANSPLANT
     Dosage: 246 MG, QD
     Route: 042
  9. BUSULFAN. [Suspect]
     Active Substance: BUSULFAN
     Indication: STEM CELL TRANSPLANT
     Dosage: 213 MG, QD
     Route: 041

REACTIONS (1)
  - Pneumonia [Recovered/Resolved with Sequelae]
